FAERS Safety Report 7380768-5 (Version None)
Quarter: 2011Q1

REPORT INFORMATION
  Report Type: 
  Country: None (occurrence: None)
  Receive Date: 20110329
  Receipt Date: 20101119
  Transmission Date: 20110831
  Serious: Yes (Hospitalization)
  Sender: FDA-Public Use
  Company Number: A0897009A

PATIENT
  Age: 55 Year
  Sex: Male

DRUGS (1)
  1. AVANDIA [Suspect]
     Dosage: 4MG PER DAY
     Route: 048
     Dates: start: 20050306, end: 20070604

REACTIONS (4)
  - CHEST PAIN [None]
  - HYPERTENSION [None]
  - HYPERLIPIDAEMIA [None]
  - ARRHYTHMIA [None]
